FAERS Safety Report 25276567 (Version 1)
Quarter: 2025Q2

REPORT INFORMATION
  Report Type: Spontaneous
  Country: JP (occurrence: JP)
  Receive Date: 20250507
  Receipt Date: 20250507
  Transmission Date: 20250717
  Serious: Yes (Other)
  Sender: ALEXION PHARMACEUTICALS
  Company Number: JP-ASTRAZENECA-202504GLO026220JP

PATIENT
  Age: 72 Year

DRUGS (1)
  1. GEFITINIB [Suspect]
     Active Substance: GEFITINIB
     Indication: Lung adenocarcinoma
     Route: 065

REACTIONS (3)
  - Sarcomatoid carcinoma [Unknown]
  - Acquired gene mutation [Unknown]
  - Drug resistance [Unknown]
